FAERS Safety Report 6655733-3 (Version None)
Quarter: 2010Q1

REPORT INFORMATION
  Report Type: 
  Country: None (occurrence: None)
  Receive Date: 20100329
  Receipt Date: 20100317
  Transmission Date: 20100710
  Serious: Yes (Other)
  Sender: FDA-Public Use
  Company Number: JP-ROCHE-674167

PATIENT
  Sex: Female
  Weight: 51.2 kg

DRUGS (4)
  1. PEGASYS [Suspect]
     Indication: HEPATITIS C
     Route: 058
     Dates: start: 20091111, end: 20091204
  2. PEGASYS [Suspect]
     Route: 058
     Dates: start: 20091211, end: 20091211
  3. COPEGUS [Suspect]
     Indication: HEPATITIS C
     Dosage: DIVIDED INTO TWO DOSE
     Route: 048
     Dates: start: 20091111, end: 20091218
  4. PARIET [Concomitant]
     Route: 048

REACTIONS (3)
  - DYSGEUSIA [None]
  - ORAL CANDIDIASIS [None]
  - STOMATITIS [None]
